FAERS Safety Report 5827866-2 (Version None)
Quarter: 2008Q3

REPORT INFORMATION
  Report Type: 
  Country: None (occurrence: None)
  Receive Date: 20080730
  Receipt Date: 20080721
  Transmission Date: 20090109
  Serious: Yes (Hospitalization, Other)
  Sender: FDA-Public Use
  Company Number: US-PFIZER INC-2008040639

PATIENT
  Sex: Female
  Weight: 68 kg

DRUGS (2)
  1. LIPITOR [Suspect]
     Indication: BLOOD CHOLESTEROL INCREASED
     Route: 048
     Dates: start: 20080201, end: 20080201
  2. DRUG, UNSPECIFIED [Concomitant]

REACTIONS (4)
  - BACK PAIN [None]
  - FIBROMYALGIA [None]
  - MUSCLE SPASMS [None]
  - PAIN IN EXTREMITY [None]
